FAERS Safety Report 16016417 (Version 1)
Quarter: 2019Q1

REPORT INFORMATION
  Report Type: Spontaneous
  Country: US (occurrence: US)
  Receive Date: 20190228
  Receipt Date: 20190228
  Transmission Date: 20190418
  Serious: Yes (Other)
  Sender: FDA-Public Use
  Company Number: None

PATIENT
  Age: 60 Year
  Sex: Female
  Weight: 71.55 kg

DRUGS (1)
  1. MYRBETRIQ [Suspect]
     Active Substance: MIRABEGRON
     Indication: CYSTITIS
     Route: 048

REACTIONS (2)
  - Joint stiffness [None]
  - Musculoskeletal stiffness [None]

NARRATIVE: CASE EVENT DATE: 20190213
